FAERS Safety Report 14684497 (Version 1)
Quarter: 2018Q1

REPORT INFORMATION
  Report Type: Spontaneous
  Country: US (occurrence: US)
  Receive Date: 20180327
  Receipt Date: 20180327
  Transmission Date: 20180509
  Serious: Yes (Death)
  Sender: FDA-Public Use
  Company Number: None

PATIENT
  Age: 7 Year
  Sex: Male
  Weight: 30 kg

DRUGS (1)
  1. BIPHENTIN [Suspect]
     Active Substance: METHYLPHENIDATE
     Indication: ATTENTION DEFICIT/HYPERACTIVITY DISORDER
     Route: 048

REACTIONS (7)
  - Intraventricular haemorrhage [None]
  - Haemodynamic instability [None]
  - Subarachnoid haemorrhage [None]
  - Cardio-respiratory arrest [None]
  - Intracranial aneurysm [None]
  - Loss of consciousness [None]
  - Headache [None]
